FAERS Safety Report 22780724 (Version 2)
Quarter: 2025Q2

REPORT INFORMATION
  Report Type: Report from Study
  Country: CR (occurrence: CR)
  Receive Date: 20230803
  Receipt Date: 20250423
  Transmission Date: 20250717
  Serious: Yes (Other)
  Sender: NOVARTIS
  Company Number: CR-002147023-NVSC2021CR134459

PATIENT
  Age: 31 Year
  Sex: Female

DRUGS (3)
  1. SECUKINUMAB [Suspect]
     Active Substance: SECUKINUMAB
     Indication: Ankylosing spondylitis
     Dosage: 150 MG, QMO (SUBCUTANEOUS-BENEATH THE SKIN, USUALLY VIA INJECTION)
     Route: 058
     Dates: start: 20200820
  2. SECUKINUMAB [Suspect]
     Active Substance: SECUKINUMAB
     Route: 050
     Dates: start: 2023
  3. SECUKINUMAB [Suspect]
     Active Substance: SECUKINUMAB
     Dosage: 150 MG, QMO
     Route: 058
     Dates: start: 2021

REACTIONS (16)
  - Multiple fractures [Unknown]
  - Colitis ulcerative [Unknown]
  - Diarrhoea [Unknown]
  - Ankylosing spondylitis [Recovered/Resolved]
  - Nonspecific reaction [Recovering/Resolving]
  - Malaise [Recovered/Resolved]
  - Vaccination site pain [Unknown]
  - Vaccination site inflammation [Unknown]
  - Chest discomfort [Unknown]
  - Infection [Unknown]
  - Sinusitis [Unknown]
  - Swelling [Unknown]
  - Back pain [Unknown]
  - Ill-defined disorder [Unknown]
  - Arthralgia [Unknown]
  - Dysmenorrhoea [Recovered/Resolved]

NARRATIVE: CASE EVENT DATE: 20210601
